FAERS Safety Report 17564928 (Version 1)
Quarter: 2020Q1

REPORT INFORMATION
  Report Type: Report from Study
  Country: IT (occurrence: IT)
  Receive Date: 20200320
  Receipt Date: 20200320
  Transmission Date: 20200409
  Serious: Yes (Other)
  Sender: FDA-Public Use
  Company Number: IT-ACCORD-176528

PATIENT
  Age: 65 Year
  Sex: Female

DRUGS (1)
  1. LETROZOLE (LETROZOLE) [Suspect]
     Active Substance: LETROZOLE
     Indication: BREAST NEOPLASM
     Route: 048
     Dates: start: 20200220, end: 20200227

REACTIONS (3)
  - Product substitution issue [Unknown]
  - Gait disturbance [Recovering/Resolving]
  - Neuropathy peripheral [Recovering/Resolving]

NARRATIVE: CASE EVENT DATE: 20200220
